FAERS Safety Report 12210327 (Version 2)
Quarter: 2016Q2

REPORT INFORMATION
  Report Type: Spontaneous
  Country: US (occurrence: US)
  Receive Date: 20160325
  Receipt Date: 20160505
  Transmission Date: 20160815
  Serious: Yes (Hospitalization, Other)
  Sender: FDA-Public Use
  Company Number: US-AUROBINDO-AUR-APL-2016-03783

PATIENT

DRUGS (4)
  1. CLOPIDOGREL [Suspect]
     Active Substance: CLOPIDOGREL BISULFATE
     Indication: CORONARY ARTERIAL STENT INSERTION
     Dosage: UNK
     Route: 065
  2. ASPIRIN. [Suspect]
     Active Substance: ASPIRIN
     Indication: CORONARY ARTERIAL STENT INSERTION
     Dosage: 81 MG, UNK
     Route: 065
  3. CLOPIDOGREL [Suspect]
     Active Substance: CLOPIDOGREL BISULFATE
     Indication: ANTIPLATELET THERAPY
  4. COUMADIN [Suspect]
     Active Substance: WARFARIN SODIUM
     Indication: CORONARY ARTERIAL STENT INSERTION
     Dosage: UNK
     Route: 065

REACTIONS (6)
  - Sciatic nerve palsy [Recovering/Resolving]
  - Back pain [Recovering/Resolving]
  - Haematoma [Recovering/Resolving]
  - Stenosis [Recovering/Resolving]
  - Paraesthesia [Recovering/Resolving]
  - Peroneal nerve palsy [Recovering/Resolving]
